FAERS Safety Report 7594523-4 (Version None)
Quarter: 2011Q2

REPORT INFORMATION
  Report Type: 
  Country: None (occurrence: None)
  Receive Date: 20110628
  Receipt Date: 20110613
  Transmission Date: 20111010
  Serious: Yes (Other)
  Sender: FDA-Public Use
  Company Number: JHP201100221

PATIENT
  Age: 58 Year
  Sex: Male

DRUGS (17)
  1. KETALAR [Suspect]
     Indication: GENERAL ANAESTHESIA
     Dosage: 100 MG, INTRAVENOUS
     Route: 042
  2. PROPOFOL [Concomitant]
  3. MIDAZOLAM HYDROCHLORIDE [Concomitant]
  4. ALBUTEROL SULFATE AUTOHALER [Concomitant]
  5. ZOLPIDEM TARTRATE [Concomitant]
  6. GABAPENTIN [Suspect]
     Dosage: 900 MG, TID
  7. HYDROCHLOROTHIAZIDE [Concomitant]
  8. BUDESONIDE [Concomitant]
  9. FENTANYL CITRATE [Concomitant]
  10. SENNA (SENNA ALEXANDRINA) [Concomitant]
  11. FORMOTEROL (FORMOTEROL FUMARATE) [Concomitant]
  12. LISINOPRIL (LISINOPRIL DIHYDRATE) [Concomitant]
  13. TOLTERODINE TARTRATE [Concomitant]
  14. WARFARIN SODIUM [Concomitant]
  15. METFORMIN HCL [Concomitant]
  16. OMEPRAZOLE [Concomitant]
  17. FERROUS SULFATE TAB [Concomitant]

REACTIONS (5)
  - DISSOCIATIVE DISORDER [None]
  - PARALYSIS [None]
  - DRUG INTERACTION [None]
  - DYSARTHRIA [None]
  - DEPRESSED LEVEL OF CONSCIOUSNESS [None]
